FAERS Safety Report 5797537-X (Version None)
Quarter: 2008Q2

REPORT INFORMATION
  Report Type: 
  Country: None (occurrence: None)
  Receive Date: 20080618
  Receipt Date: 20071026
  Transmission Date: 20081010
  Serious: Yes (Other)
  Sender: FDA-Public Use
  Company Number: 200717060US

PATIENT
  Age: 87 Year
  Sex: Male

DRUGS (10)
  1. LANTUS [Suspect]
     Indication: TYPE 2 DIABETES MELLITUS
     Dosage: 15 U QD INJ
     Route: 042
     Dates: start: 20060101, end: 20071001
  2. LANTUS [Suspect]
     Indication: TYPE 2 DIABETES MELLITUS
     Dosage: 25 U QD INJ
     Route: 042
     Dates: start: 20071001
  3. LANTUS [Suspect]
     Indication: TYPE 2 DIABETES MELLITUS
     Dosage: 15 U HS INJ
     Route: 042
     Dates: start: 20071001, end: 20071001
  4. LANTUS [Suspect]
     Indication: TYPE 2 DIABETES MELLITUS
     Dosage: 10 U HS INJ
     Route: 042
     Dates: start: 20071001
  5. OPTICLIK [Suspect]
     Indication: TYPE 2 DIABETES MELLITUS
  6. LABETALOL HCL [Concomitant]
  7. ISOSORBIDE DINITRATE [Concomitant]
  8. SIMVASTATIN [Concomitant]
  9. GLIPIZIDE [Concomitant]
  10. STARLIX [Concomitant]

REACTIONS (5)
  - BLOOD GLUCOSE DECREASED [None]
  - BLOOD GLUCOSE INCREASED [None]
  - DIZZINESS [None]
  - HYPOGLYCAEMIC UNCONSCIOUSNESS [None]
  - SOMNOLENCE [None]
